FAERS Safety Report 9728086 (Version 1)
Quarter: 2013Q4

REPORT INFORMATION
  Report Type: Spontaneous
  Country: US (occurrence: None)
  Receive Date: 20131203
  Receipt Date: 20131203
  Transmission Date: 20140711
  Serious: Yes (Other)
  Sender: FDA-Public Use
  Company Number: None

PATIENT
  Age: 42 Year
  Sex: Male
  Weight: 90.72 kg

DRUGS (3)
  1. METHYLPREDNISOLONE ACETATE [Suspect]
     Indication: PAIN
     Dosage: 3 SHOTS, 1 SHOT EVER OTHER WEEK
     Dates: start: 20120322
  2. NORCO [Concomitant]
  3. AMBIEN [Concomitant]

REACTIONS (3)
  - Photosensitivity reaction [None]
  - Vision blurred [None]
  - Retinal oedema [None]
